FAERS Safety Report 8114767-2 (Version None)
Quarter: 2012Q1

REPORT INFORMATION
  Report Type: 
  Country: None (occurrence: None)
  Receive Date: 20120206
  Receipt Date: 20120131
  Transmission Date: 20120608
  Serious: Yes (Death, Other)
  Sender: FDA-Public Use
  Company Number: US-CELGENEUS-163-21880-12020086

PATIENT
  Age: 71 Year
  Sex: Female

DRUGS (15)
  1. DOXIL [Concomitant]
     Route: 065
  2. ONDANSETRON [Concomitant]
     Route: 065
  3. REVLIMID [Suspect]
     Dosage: 10 MILLIGRAM
     Route: 048
     Dates: start: 20110606, end: 20110701
  4. AMLODIPINE [Concomitant]
     Route: 065
  5. GARLIC [Concomitant]
     Route: 065
  6. VITAMIN E [Concomitant]
     Route: 065
  7. VINCRISTINE [Concomitant]
     Route: 065
  8. M.V.I. [Concomitant]
     Route: 065
  9. FAMOTIDINE [Concomitant]
     Route: 065
  10. ATENOLOL [Concomitant]
     Route: 065
  11. REVLIMID [Suspect]
     Indication: MULTIPLE MYELOMA
     Dosage: 10 MILLIGRAM
     Route: 048
     Dates: start: 20110422, end: 20110501
  12. DEXAMETHASONE [Concomitant]
     Route: 065
  13. VITAMIN D [Concomitant]
     Route: 065
  14. PREMARIN [Concomitant]
     Route: 067
  15. VICODIN [Concomitant]
     Route: 065

REACTIONS (3)
  - RENAL FAILURE [None]
  - MULTIPLE MYELOMA [None]
  - DEATH [None]
